FAERS Safety Report 17205173 (Version 10)
Quarter: 2020Q3

REPORT INFORMATION
  Report Type: Report from Study
  Country: US (occurrence: US)
  Receive Date: 20191227
  Receipt Date: 20200819
  Transmission Date: 20201102
  Serious: Yes (Hospitalization, Other)
  Sender: FDA-Public Use
  Company Number: US-ACTELION-A-US2019-199755

PATIENT
  Sex: Female
  Weight: 74.38 kg

DRUGS (8)
  1. UPTRAVI [Suspect]
     Active Substance: SELEXIPAG
     Indication: PULMONARY ARTERIAL HYPERTENSION
     Dosage: 600 MCG, BID
     Route: 048
  2. AMLODIPINE [Concomitant]
     Active Substance: AMLODIPINE BESYLATE
  3. UPTRAVI [Suspect]
     Active Substance: SELEXIPAG
     Dosage: 200 MCG, BID
     Route: 048
     Dates: start: 2019
  4. UPTRAVI [Suspect]
     Active Substance: SELEXIPAG
     Dosage: 1600 MCG, BID
     Route: 048
  5. SILDENAFIL CITRATE. [Concomitant]
     Active Substance: SILDENAFIL CITRATE
  6. OPSUMIT [Suspect]
     Active Substance: MACITENTAN
     Indication: PULMONARY ARTERIAL HYPERTENSION
     Dosage: 10 MG, QD
     Route: 048
     Dates: end: 20200117
  7. UPTRAVI [Suspect]
     Active Substance: SELEXIPAG
     Dosage: 400 MCG IN AM, 600 MCG IN PM
     Route: 048
  8. UPTRAVI [Suspect]
     Active Substance: SELEXIPAG
     Dosage: 200 MCG, BID
     Route: 048
     Dates: start: 20200127

REACTIONS (18)
  - Pulmonary oedema [Recovering/Resolving]
  - Urine odour abnormal [Unknown]
  - Gastroenteritis viral [Recovered/Resolved]
  - Lower limb fracture [Unknown]
  - Arthralgia [Unknown]
  - Pain [Unknown]
  - Diarrhoea [Unknown]
  - Vomiting [Unknown]
  - Pneumonia staphylococcal [Recovering/Resolving]
  - Respiratory tract infection [Unknown]
  - Productive cough [Unknown]
  - Nausea [Unknown]
  - Pneumonia [Recovering/Resolving]
  - Respiratory distress [Unknown]
  - Pollakiuria [Unknown]
  - Illness [Not Recovered/Not Resolved]
  - Patella fracture [Unknown]
  - Rales [Unknown]
